FAERS Safety Report 9908719 (Version 3)
Quarter: 2014Q2

REPORT INFORMATION
  Report Type: Spontaneous
  Country: US (occurrence: US)
  Receive Date: 20140219
  Receipt Date: 20140402
  Transmission Date: 20141212
  Serious: No
  Sender: FDA-Public Use
  Company Number: US-PFIZER INC-2014046508

PATIENT
  Sex: Female

DRUGS (1)
  1. PRISTIQ [Suspect]
     Dosage: 100 MG, UNK

REACTIONS (9)
  - Drug withdrawal syndrome [Unknown]
  - Rebound effect [Unknown]
  - Dizziness [Unknown]
  - Impaired driving ability [Unknown]
  - Feeling abnormal [Unknown]
  - Malaise [Unknown]
  - Nervousness [Unknown]
  - Asthenia [Unknown]
  - Impaired work ability [Unknown]
